FAERS Safety Report 9698119 (Version 2)
Quarter: 2015Q4

REPORT INFORMATION
  Report Type: Spontaneous
  Country: US (occurrence: US)
  Receive Date: 20131120
  Receipt Date: 20151217
  Transmission Date: 20160305
  Serious: Yes (Other)
  Sender: FDA-Public Use
  Company Number: US-SA-2013SA119338

PATIENT
  Age: 72 Year
  Sex: Male

DRUGS (6)
  1. LANTUS SOLOSTAR [Suspect]
     Active Substance: INSULIN GLARGINE
     Indication: TYPE 2 DIABETES MELLITUS
     Dosage: DOSE:50 UNIT(S)
     Route: 058
  2. GLYBURIDE. [Concomitant]
     Active Substance: GLYBURIDE
     Dates: start: 1993
  3. SOLOSTAR [Concomitant]
     Active Substance: DEVICE
     Indication: TYPE 2 DIABETES MELLITUS
  4. HUMALOG [Concomitant]
     Active Substance: INSULIN LISPRO
  5. LANTUS SOLOSTAR [Suspect]
     Active Substance: INSULIN GLARGINE
     Indication: TYPE 2 DIABETES MELLITUS
     Dosage: DOSE:10 UNIT(S)
     Route: 058
     Dates: start: 2007
  6. GLUCOPHAGE [Concomitant]
     Active Substance: METFORMIN HYDROCHLORIDE
     Dates: start: 2010

REACTIONS (6)
  - Crohn^s disease [Unknown]
  - Drug ineffective [Unknown]
  - Blood glucose increased [Unknown]
  - Gastroenteritis [Unknown]
  - Colitis ulcerative [Unknown]
  - Hypoacusis [Unknown]
